FAERS Safety Report 15487607 (Version 2)
Quarter: 2018Q4

REPORT INFORMATION
  Report Type: Spontaneous
  Country: US (occurrence: US)
  Receive Date: 20181011
  Receipt Date: 20181012
  Transmission Date: 20190205
  Serious: No
  Sender: FDA-Public Use
  Company Number: US-BAYER-2018-189778

PATIENT
  Age: 58 Year
  Sex: Female

DRUGS (1)
  1. CLIMARA PRO [Suspect]
     Active Substance: ESTRADIOL\LEVONORGESTREL
     Indication: HORMONE REPLACEMENT THERAPY
     Dosage: UNK
     Route: 062
     Dates: start: 201807

REACTIONS (4)
  - Wrong technique in product usage process [None]
  - Headache [None]
  - Hot flush [None]
  - Product adhesion issue [None]

NARRATIVE: CASE EVENT DATE: 20180928
